FAERS Safety Report 20351913 (Version 1)
Quarter: 2022Q1

REPORT INFORMATION
  Report Type: Spontaneous
  Country: US (occurrence: None)
  Receive Date: 20220118
  Receipt Date: 20220118
  Transmission Date: 20220423
  Serious: Yes (Disabling)
  Sender: FDA-Public Use
  Company Number: None

PATIENT
  Age: 41 Year
  Sex: Female
  Weight: 58.5 kg

DRUGS (1)
  1. GADAVIST [Suspect]
     Active Substance: GADOBUTROL
     Indication: Magnetic resonance imaging
     Route: 042
     Dates: start: 20181008, end: 20210511

REACTIONS (8)
  - Pain [None]
  - Burning sensation [None]
  - Pruritus [None]
  - Erythema [None]
  - Nervous system disorder [None]
  - Contrast media toxicity [None]
  - Illness [None]
  - Head discomfort [None]

NARRATIVE: CASE EVENT DATE: 20201218
